FAERS Safety Report 24600926 (Version 1)
Quarter: 2024Q4

REPORT INFORMATION
  Report Type: Spontaneous
  Country: US (occurrence: US)
  Receive Date: 20241110
  Receipt Date: 20241110
  Transmission Date: 20250114
  Serious: No
  Sender: BAUSCH AND LOMB
  Company Number: US-BAUSCHBL-2024BNL036757

PATIENT
  Sex: Female

DRUGS (2)
  1. MIEBO [Suspect]
     Active Substance: PERFLUOROHEXYLOCTANE
     Indication: Product used for unknown indication
     Route: 047
  2. REFRESH PRESERVATIVE FREE [Concomitant]
     Indication: Product used for unknown indication
     Route: 065

REACTIONS (1)
  - Blepharospasm [Unknown]
